FAERS Safety Report 8868501 (Version 1)
Quarter: 2012Q4

REPORT INFORMATION
  Report Type: 
  Country: US (occurrence: US)
  Receive Date: 20121025
  Receipt Date: 20121025
  Transmission Date: 20130627
  Serious: No
  Sender: FDA-Public Use
  Company Number: US-AMGEN-USASP2012019901

PATIENT
  Sex: Female
  Weight: 56.24 kg

DRUGS (9)
  1. ENBREL [Suspect]
     Indication: PRODUCT USED FOR UNKNOWN INDICATION
     Dosage: 25 mg, 2 times/wk
     Route: 058
  2. OMEPRAZOLE [Concomitant]
     Dosage: 20 mg, UNK
  3. CELEBREX [Concomitant]
     Dosage: 200 mg, UNK
  4. TYLENOL 8 HOUR [Concomitant]
     Dosage: 650 mg, UNK
  5. ASA [Concomitant]
     Dosage: 81 mg, UNK
  6. LEVOXYL [Concomitant]
     Dosage: 125 mug, UNK
  7. LIPITOR [Concomitant]
     Dosage: 10 mg, UNK
  8. CLARITIN                           /00413701/ [Concomitant]
     Dosage: 5 mg, UNK
  9. BENADRYL ALLERGY                   /00000402/ [Concomitant]
     Dosage: 25 mg, UNK

REACTIONS (3)
  - Eye pruritus [Unknown]
  - Nasal congestion [Unknown]
  - Hypersensitivity [Unknown]
